FAERS Safety Report 12639332 (Version 1)
Quarter: 2016Q3

REPORT INFORMATION
  Report Type: Spontaneous
  Country: US (occurrence: None)
  Receive Date: 20160809
  Receipt Date: 20160809
  Transmission Date: 20161109
  Serious: Yes (Death)
  Sender: FDA-Public Use
  Company Number: None

PATIENT
  Age: 23 Year
  Sex: Male

DRUGS (8)
  1. ALCOHOL (ETHANOL) [Suspect]
     Active Substance: ALCOHOL
  2. DEMOXEPAM. [Suspect]
     Active Substance: DEMOXEPAM
  3. MITRAGYNINE [Suspect]
     Active Substance: MITRAGYNINE
  4. CITALOPRAM [Suspect]
     Active Substance: CITALOPRAM HYDROBROMIDE
  5. CHLORDIAZEPOXIDE. [Suspect]
     Active Substance: CHLORDIAZEPOXIDE
  6. MORPHINE [Suspect]
     Active Substance: MORPHINE
  7. NORDIAZEPAM [Suspect]
     Active Substance: NORDAZEPAM
  8. ALPRAZOLAM. [Suspect]
     Active Substance: ALPRAZOLAM

REACTIONS (4)
  - Toxicity to various agents [None]
  - Accidental death [None]
  - Injury associated with device [None]
  - Alcohol poisoning [None]

NARRATIVE: CASE EVENT DATE: 20150719
